FAERS Safety Report 14370099 (Version 2)
Quarter: 2018Q4

REPORT INFORMATION
  Report Type: Other
  Country: US (occurrence: US)
  Receive Date: 20180110
  Receipt Date: 20181025
  Transmission Date: 20190204
  Serious: Yes (Hospitalization)
  Sender: FDA-Public Use
  Company Number: US-VISTAPHARM, INC.-VER201801-000069

PATIENT
  Age: 42 Year
  Sex: Female

DRUGS (17)
  1. MORPHINE [Suspect]
     Active Substance: MORPHINE
     Route: 037
     Dates: start: 200202
  2. MORPHINE [Suspect]
     Active Substance: MORPHINE
     Route: 037
  3. MORPHINE [Suspect]
     Active Substance: MORPHINE
     Route: 037
     Dates: start: 199908
  4. MORPHINE [Suspect]
     Active Substance: MORPHINE
     Route: 037
     Dates: start: 200402
  5. MORPHINE [Suspect]
     Active Substance: MORPHINE
     Dates: start: 201005
  6. MORPHINE [Suspect]
     Active Substance: MORPHINE
     Route: 037
     Dates: start: 200012
  7. MORPHINE [Suspect]
     Active Substance: MORPHINE
     Route: 037
     Dates: start: 200502
  8. MORPHINE [Suspect]
     Active Substance: MORPHINE
     Dates: start: 200710
  9. MORPHINE [Suspect]
     Active Substance: MORPHINE
     Indication: ABDOMINAL PAIN
     Route: 037
     Dates: start: 199712
  10. MORPHINE [Suspect]
     Active Substance: MORPHINE
     Dates: start: 200610
  11. MORPHINE [Suspect]
     Active Substance: MORPHINE
     Dates: start: 201201
  12. MORPHINE [Suspect]
     Active Substance: MORPHINE
     Dates: start: 201302
  13. MORPHINE [Suspect]
     Active Substance: MORPHINE
     Dates: start: 200607
  14. MORPHINE [Suspect]
     Active Substance: MORPHINE
     Dates: start: 201103
  15. MORPHINE [Suspect]
     Active Substance: MORPHINE
     Dates: start: 200709
  16. MORPHINE [Suspect]
     Active Substance: MORPHINE
     Dates: start: 201305
  17. MORPHINE [Suspect]
     Active Substance: MORPHINE
     Dates: start: 201602

REACTIONS (1)
  - Granuloma [Recovered/Resolved]
